FAERS Safety Report 17223767 (Version 1)
Quarter: 2019Q4

REPORT INFORMATION
  Report Type: Spontaneous
  Country: US (occurrence: US)
  Receive Date: 20191209
  Receipt Date: 20191209
  Transmission Date: 20200122
  Serious: Yes (Hospitalization, Other)
  Sender: FDA-Public Use
  Company Number: None

PATIENT
  Age: 72 Year
  Sex: Male

DRUGS (9)
  1. LEVOTHYROXIN [Concomitant]
     Active Substance: LEVOTHYROXINE
  2. MOEXIPRIL [Concomitant]
     Active Substance: MOEXIPRIL HYDROCHLORIDE
  3. NINLARO [Suspect]
     Active Substance: IXAZOMIB CITRATE
     Indication: PLASMA CELL MYELOMA IN REMISSION
     Dosage: ?          OTHER FREQUENCY:1XDAY 3W-OX 1W;?
     Route: 048
     Dates: start: 20180118
  4. ACYCLOVIR. [Concomitant]
     Active Substance: ACYCLOVIR
  5. LISINOPRIL. [Concomitant]
     Active Substance: LISINOPRIL
  6. BACTRIM [Concomitant]
     Active Substance: SULFAMETHOXAZOLE\TRIMETHOPRIM
  7. TAMSULOSIN [Concomitant]
     Active Substance: TAMSULOSIN
  8. ASPIRIN. [Concomitant]
     Active Substance: ASPIRIN
  9. DOXYCYCL [Concomitant]

REACTIONS (1)
  - Surgery [None]

NARRATIVE: CASE EVENT DATE: 20191206
